FAERS Safety Report 26121203 (Version 1)
Quarter: 2025Q4

REPORT INFORMATION
  Report Type: Spontaneous
  Country: US (occurrence: None)
  Receive Date: 20251202
  Receipt Date: 20251202
  Transmission Date: 20260117
  Serious: No
  Sender: FDA-CTU
  Company Number: None

PATIENT
  Age: 71 Year
  Sex: Female

DRUGS (1)
  1. JAKAFI [Suspect]
     Active Substance: RUXOLITINIB
     Indication: Polycythaemia vera
     Dosage: 5 MG BID ORAL ?
     Route: 048
     Dates: start: 20251202

REACTIONS (2)
  - Treatment noncompliance [None]
  - Intentional product use issue [None]

NARRATIVE: CASE EVENT DATE: 20251202
